FAERS Safety Report 17981065 (Version 2)
Quarter: 2020Q3

REPORT INFORMATION
  Report Type: Spontaneous
  Country: JP (occurrence: JP)
  Receive Date: 20200704
  Receipt Date: 20200707
  Transmission Date: 20201103
  Serious: Yes (Other)
  Sender: FDA-Public Use
  Company Number: NVSC2020JP187596

PATIENT
  Age: 80 Year
  Sex: Female
  Weight: 52.2 kg

DRUGS (6)
  1. AMANTADINE. [Suspect]
     Active Substance: AMANTADINE HYDROCHLORIDE
     Indication: CEREBRAL INFARCTION
     Dosage: 150 MG, QD ON DAY 13
     Route: 065
  2. DONEPEZIL. [Interacting]
     Active Substance: DONEPEZIL
     Dosage: 5 MG, QD, 24TH DAY
     Route: 065
  3. APIXABAN [Concomitant]
     Active Substance: APIXABAN
     Indication: CEREBRAL INFARCTION
     Dosage: UNK
     Route: 065
  4. AMANTADINE. [Interacting]
     Active Substance: AMANTADINE HYDROCHLORIDE
     Indication: NEUROLOGICAL SYMPTOM
  5. DONEPEZIL. [Interacting]
     Active Substance: DONEPEZIL
     Indication: DEMENTIA ALZHEIMER^S TYPE
     Dosage: 3 MG, QD, 16TH DAY
     Route: 065
  6. APIXABAN [Concomitant]
     Active Substance: APIXABAN
     Indication: NEUROLOGICAL SYMPTOM

REACTIONS (5)
  - Pyrexia [Unknown]
  - Product use in unapproved indication [Unknown]
  - Drug interaction [Unknown]
  - Dyskinesia [Unknown]
  - Toxicity to various agents [Unknown]
